FAERS Safety Report 7826832-5 (Version None)
Quarter: 2011Q4

REPORT INFORMATION
  Report Type: 
  Country: None (occurrence: None)
  Receive Date: 20111020
  Receipt Date: 20111010
  Transmission Date: 20120403
  Serious: Yes (Death)
  Sender: FDA-Public Use
  Company Number: US-RANBAXY-2011US-49466

PATIENT
  Age: 39 Year
  Sex: Male

DRUGS (2)
  1. ACETAMINOPHEN [Suspect]
     Indication: PRODUCT USED FOR UNKNOWN INDICATION
     Dosage: UNK, UNK
     Route: 048
  2. DISULFIRAM [Suspect]
     Indication: PRODUCT USED FOR UNKNOWN INDICATION
     Dosage: UNK, UNK
     Route: 048

REACTIONS (4)
  - ADVERSE REACTION [None]
  - ACUTE HEPATIC FAILURE [None]
  - RENAL FAILURE [None]
  - INTRACRANIAL PRESSURE INCREASED [None]
